FAERS Safety Report 13537604 (Version 2)
Quarter: 2017Q3

REPORT INFORMATION
  Report Type: Spontaneous
  Country: US (occurrence: US)
  Receive Date: 20170511
  Receipt Date: 20170712
  Transmission Date: 20171127
  Serious: No
  Sender: FDA-Public Use
  Company Number: US-TEVA-766250ACC

PATIENT
  Age: 62 Year
  Sex: Female

DRUGS (11)
  1. LINZESS [Concomitant]
     Active Substance: LINACLOTIDE
  2. MAGNESIUM [Concomitant]
     Active Substance: MAGNESIUM
  3. ASPIRIN. [Concomitant]
     Active Substance: ASPIRIN
  4. PAXIL [Concomitant]
     Active Substance: PAROXETINE HYDROCHLORIDE
  5. COPAXONE [Suspect]
     Active Substance: GLATIRAMER ACETATE
     Indication: MULTIPLE SCLEROSIS
     Dosage: PEN
     Route: 058
     Dates: start: 20160329
  6. COLACE [Concomitant]
     Active Substance: DOCUSATE SODIUM
  7. LITHIUM CARB [Concomitant]
     Active Substance: LITHIUM CARBONATE
  8. RISPERIDONE. [Concomitant]
     Active Substance: RISPERIDONE
  9. LEVOTHYROXIN [Concomitant]
     Active Substance: LEVOTHYROXINE
  10. FLUOXETINE [Concomitant]
     Active Substance: FLUOXETINE HYDROCHLORIDE
  11. COD LIVER [Concomitant]
     Active Substance: COD LIVER OIL

REACTIONS (3)
  - Gait disturbance [Unknown]
  - Fall [Unknown]
  - Motor dysfunction [Unknown]

NARRATIVE: CASE EVENT DATE: 201704
